FAERS Safety Report 25364685 (Version 1)
Quarter: 2025Q2

REPORT INFORMATION
  Report Type: Spontaneous
  Country: GB (occurrence: GB)
  Receive Date: 20250527
  Receipt Date: 20250527
  Transmission Date: 20250717
  Serious: Yes (Hospitalization, Other)
  Sender: MYLAN
  Company Number: GB-MEDREICH PLC-MHP202505-003479

PATIENT
  Age: 76 Year
  Sex: Male

DRUGS (96)
  1. LANSOPRAZOLE [Suspect]
     Active Substance: LANSOPRAZOLE
     Indication: Product used for unknown indication
  2. LANSOPRAZOLE [Suspect]
     Active Substance: LANSOPRAZOLE
     Route: 048
  3. LANSOPRAZOLE [Suspect]
     Active Substance: LANSOPRAZOLE
     Route: 048
  4. LANSOPRAZOLE [Suspect]
     Active Substance: LANSOPRAZOLE
  5. CARBAMAZEPINE [Suspect]
     Active Substance: CARBAMAZEPINE
     Indication: Seizure
     Route: 048
  6. CARBAMAZEPINE [Suspect]
     Active Substance: CARBAMAZEPINE
     Indication: Cerebrovascular accident
  7. CARBAMAZEPINE [Suspect]
     Active Substance: CARBAMAZEPINE
  8. CARBAMAZEPINE [Suspect]
     Active Substance: CARBAMAZEPINE
     Route: 048
  9. CARBAMAZEPINE [Suspect]
     Active Substance: CARBAMAZEPINE
     Route: 048
  10. CARBAMAZEPINE [Suspect]
     Active Substance: CARBAMAZEPINE
  11. CARBAMAZEPINE [Suspect]
     Active Substance: CARBAMAZEPINE
  12. CARBAMAZEPINE [Suspect]
     Active Substance: CARBAMAZEPINE
     Route: 048
  13. CARBAMAZEPINE [Concomitant]
     Active Substance: CARBAMAZEPINE
     Indication: Seizure
     Dosage: 200 MILLIGRAM, QD (ONCE DAILY (QD) IN THE MORNING ORALLY (PO))
     Dates: start: 202503
  14. CARBAMAZEPINE [Concomitant]
     Active Substance: CARBAMAZEPINE
     Indication: Cerebrovascular accident
     Dosage: 200 MILLIGRAM, QD (ONCE DAILY (QD) IN THE MORNING ORALLY (PO))
     Dates: start: 202503
  15. CARBAMAZEPINE [Concomitant]
     Active Substance: CARBAMAZEPINE
     Dosage: 200 MILLIGRAM, QD (ONCE DAILY (QD) IN THE MORNING ORALLY (PO))
     Route: 048
     Dates: start: 202503
  16. CARBAMAZEPINE [Concomitant]
     Active Substance: CARBAMAZEPINE
     Dosage: 200 MILLIGRAM, QD (ONCE DAILY (QD) IN THE MORNING ORALLY (PO))
     Route: 048
     Dates: start: 202503
  17. CARBAMAZEPINE [Concomitant]
     Active Substance: CARBAMAZEPINE
     Dosage: 100 MILLIGRAM, QD (QD IN THE AFTERNOON PO)
     Dates: start: 202503
  18. CARBAMAZEPINE [Concomitant]
     Active Substance: CARBAMAZEPINE
     Dosage: 100 MILLIGRAM, QD (QD IN THE AFTERNOON PO)
     Dates: start: 202503
  19. CARBAMAZEPINE [Concomitant]
     Active Substance: CARBAMAZEPINE
     Dosage: 100 MILLIGRAM, QD (QD IN THE AFTERNOON PO)
     Route: 048
     Dates: start: 202503
  20. CARBAMAZEPINE [Concomitant]
     Active Substance: CARBAMAZEPINE
     Dosage: 100 MILLIGRAM, QD (QD IN THE AFTERNOON PO)
     Route: 048
     Dates: start: 202503
  21. LANSOPRAZOLE [Concomitant]
     Active Substance: LANSOPRAZOLE
     Indication: Gastrooesophageal reflux disease
  22. LANSOPRAZOLE [Concomitant]
     Active Substance: LANSOPRAZOLE
     Route: 048
  23. LANSOPRAZOLE [Concomitant]
     Active Substance: LANSOPRAZOLE
     Route: 048
  24. LANSOPRAZOLE [Concomitant]
     Active Substance: LANSOPRAZOLE
  25. TADALAFIL [Concomitant]
     Active Substance: TADALAFIL
     Indication: Erectile dysfunction
  26. TADALAFIL [Concomitant]
     Active Substance: TADALAFIL
     Route: 048
  27. TADALAFIL [Concomitant]
     Active Substance: TADALAFIL
     Route: 048
  28. TADALAFIL [Concomitant]
     Active Substance: TADALAFIL
  29. LORATADINE [Concomitant]
     Active Substance: LORATADINE
     Indication: Seasonal allergy
  30. LORATADINE [Concomitant]
     Active Substance: LORATADINE
     Route: 048
  31. LORATADINE [Concomitant]
     Active Substance: LORATADINE
     Route: 048
  32. LORATADINE [Concomitant]
     Active Substance: LORATADINE
  33. BUDESONIDE [Concomitant]
     Active Substance: BUDESONIDE
     Indication: Seasonal allergy
     Dosage: 200 MICROGRAM, BID (200 MCG/INHALATION 1-2 PUFFS TWICE DAILY (BID))
  34. BUDESONIDE [Concomitant]
     Active Substance: BUDESONIDE
     Dosage: 200 MICROGRAM, BID (200 MCG/INHALATION 1-2 PUFFS TWICE DAILY (BID))
     Route: 055
  35. BUDESONIDE [Concomitant]
     Active Substance: BUDESONIDE
     Dosage: 200 MICROGRAM, BID (200 MCG/INHALATION 1-2 PUFFS TWICE DAILY (BID))
     Route: 055
  36. BUDESONIDE [Concomitant]
     Active Substance: BUDESONIDE
     Dosage: 200 MICROGRAM, BID (200 MCG/INHALATION 1-2 PUFFS TWICE DAILY (BID))
  37. RAMIPRIL [Concomitant]
     Active Substance: RAMIPRIL
     Indication: Hypertension
  38. RAMIPRIL [Concomitant]
     Active Substance: RAMIPRIL
     Route: 048
  39. RAMIPRIL [Concomitant]
     Active Substance: RAMIPRIL
     Route: 048
  40. RAMIPRIL [Concomitant]
     Active Substance: RAMIPRIL
  41. SPIRONOLACTONE [Concomitant]
     Active Substance: SPIRONOLACTONE
     Indication: Cardiac amyloidosis
  42. SPIRONOLACTONE [Concomitant]
     Active Substance: SPIRONOLACTONE
  43. SPIRONOLACTONE [Concomitant]
     Active Substance: SPIRONOLACTONE
     Route: 048
  44. SPIRONOLACTONE [Concomitant]
     Active Substance: SPIRONOLACTONE
     Route: 048
  45. SPIRONOLACTONE [Concomitant]
     Active Substance: SPIRONOLACTONE
  46. SPIRONOLACTONE [Concomitant]
     Active Substance: SPIRONOLACTONE
  47. SPIRONOLACTONE [Concomitant]
     Active Substance: SPIRONOLACTONE
     Route: 048
  48. SPIRONOLACTONE [Concomitant]
     Active Substance: SPIRONOLACTONE
     Route: 048
  49. SPIRONOLACTONE [Concomitant]
     Active Substance: SPIRONOLACTONE
  50. SPIRONOLACTONE [Concomitant]
     Active Substance: SPIRONOLACTONE
     Route: 048
  51. SPIRONOLACTONE [Concomitant]
     Active Substance: SPIRONOLACTONE
  52. SPIRONOLACTONE [Concomitant]
     Active Substance: SPIRONOLACTONE
     Route: 048
  53. WARFARIN [Concomitant]
     Active Substance: WARFARIN
     Indication: Atrial fibrillation
  54. WARFARIN [Concomitant]
     Active Substance: WARFARIN
  55. WARFARIN [Concomitant]
     Active Substance: WARFARIN
     Route: 048
  56. WARFARIN [Concomitant]
     Active Substance: WARFARIN
     Route: 048
  57. WARFARIN [Concomitant]
     Active Substance: WARFARIN
  58. WARFARIN [Concomitant]
     Active Substance: WARFARIN
  59. WARFARIN [Concomitant]
     Active Substance: WARFARIN
     Route: 048
  60. WARFARIN [Concomitant]
     Active Substance: WARFARIN
     Route: 048
  61. CALCIUM CARBONATE\CHOLECALCIFEROL [Concomitant]
     Active Substance: CALCIUM CARBONATE\CHOLECALCIFEROL
     Indication: Product used for unknown indication
     Dosage: UNK, BID (400 UNITS / 1.5 G BID)
  62. CALCIUM CARBONATE\CHOLECALCIFEROL [Concomitant]
     Active Substance: CALCIUM CARBONATE\CHOLECALCIFEROL
     Dosage: UNK, BID (400 UNITS / 1.5 G BID)
     Route: 048
  63. CALCIUM CARBONATE\CHOLECALCIFEROL [Concomitant]
     Active Substance: CALCIUM CARBONATE\CHOLECALCIFEROL
     Dosage: UNK, BID (400 UNITS / 1.5 G BID)
     Route: 048
  64. CALCIUM CARBONATE\CHOLECALCIFEROL [Concomitant]
     Active Substance: CALCIUM CARBONATE\CHOLECALCIFEROL
     Dosage: UNK, BID (400 UNITS / 1.5 G BID)
  65. CALCIUM CARBONATE\CHOLECALCIFEROL [Concomitant]
     Active Substance: CALCIUM CARBONATE\CHOLECALCIFEROL
     Indication: Femur fracture
  66. CALCIUM CARBONATE\CHOLECALCIFEROL [Concomitant]
     Active Substance: CALCIUM CARBONATE\CHOLECALCIFEROL
     Route: 048
  67. CALCIUM CARBONATE\CHOLECALCIFEROL [Concomitant]
     Active Substance: CALCIUM CARBONATE\CHOLECALCIFEROL
     Route: 048
  68. CALCIUM CARBONATE\CHOLECALCIFEROL [Concomitant]
     Active Substance: CALCIUM CARBONATE\CHOLECALCIFEROL
  69. ALENDRONIC ACID [Concomitant]
     Active Substance: ALENDRONIC ACID
     Indication: Fall
  70. ALENDRONIC ACID [Concomitant]
     Active Substance: ALENDRONIC ACID
     Route: 048
  71. ALENDRONIC ACID [Concomitant]
     Active Substance: ALENDRONIC ACID
     Route: 048
  72. ALENDRONIC ACID [Concomitant]
     Active Substance: ALENDRONIC ACID
  73. DAPAGLIFLOZIN [Concomitant]
     Active Substance: DAPAGLIFLOZIN
     Indication: Cardiac amyloidosis
     Dosage: 10 MILLIGRAM, QD (10 MG QD PO)
     Dates: start: 20230518
  74. DAPAGLIFLOZIN [Concomitant]
     Active Substance: DAPAGLIFLOZIN
     Dosage: 10 MILLIGRAM, QD (10 MG QD PO)
     Route: 048
     Dates: start: 20230518
  75. DAPAGLIFLOZIN [Concomitant]
     Active Substance: DAPAGLIFLOZIN
     Dosage: 10 MILLIGRAM, QD (10 MG QD PO)
     Route: 048
     Dates: start: 20230518
  76. DAPAGLIFLOZIN [Concomitant]
     Active Substance: DAPAGLIFLOZIN
     Dosage: 10 MILLIGRAM, QD (10 MG QD PO)
     Dates: start: 20230518
  77. ATORVASTATIN [Concomitant]
     Active Substance: ATORVASTATIN
     Indication: Hypercholesterolaemia
     Route: 048
  78. ATORVASTATIN [Concomitant]
     Active Substance: ATORVASTATIN
  79. ATORVASTATIN [Concomitant]
     Active Substance: ATORVASTATIN
  80. ATORVASTATIN [Concomitant]
     Active Substance: ATORVASTATIN
     Route: 048
  81. ATORVASTATIN [Concomitant]
     Active Substance: ATORVASTATIN
     Route: 048
  82. ATORVASTATIN [Concomitant]
     Active Substance: ATORVASTATIN
  83. ATORVASTATIN [Concomitant]
     Active Substance: ATORVASTATIN
  84. ATORVASTATIN [Concomitant]
     Active Substance: ATORVASTATIN
     Route: 048
  85. FUROSEMIDE [Concomitant]
     Active Substance: FUROSEMIDE
     Indication: Cardiac amyloidosis
  86. FUROSEMIDE [Concomitant]
     Active Substance: FUROSEMIDE
     Route: 048
  87. FUROSEMIDE [Concomitant]
     Active Substance: FUROSEMIDE
     Route: 048
  88. FUROSEMIDE [Concomitant]
     Active Substance: FUROSEMIDE
  89. SULFASALAZINE [Concomitant]
     Active Substance: SULFASALAZINE
     Indication: Colitis ulcerative
  90. SULFASALAZINE [Concomitant]
     Active Substance: SULFASALAZINE
     Route: 048
  91. SULFASALAZINE [Concomitant]
     Active Substance: SULFASALAZINE
     Route: 048
  92. SULFASALAZINE [Concomitant]
     Active Substance: SULFASALAZINE
  93. ACORAMIDIS [Concomitant]
     Active Substance: ACORAMIDIS
     Indication: Cardiac amyloidosis
  94. ACORAMIDIS [Concomitant]
     Active Substance: ACORAMIDIS
     Route: 065
  95. ACORAMIDIS [Concomitant]
     Active Substance: ACORAMIDIS
     Route: 065
  96. ACORAMIDIS [Concomitant]
     Active Substance: ACORAMIDIS

REACTIONS (9)
  - Inappropriate antidiuretic hormone secretion [Recovered/Resolved]
  - Iron deficiency anaemia [Recovered/Resolved]
  - Asthenia [Unknown]
  - Somnolence [Unknown]
  - Dyspnoea [Unknown]
  - Cough [Unknown]
  - Hyponatraemia [Unknown]
  - Hypotension [Unknown]
  - International normalised ratio decreased [Unknown]

NARRATIVE: CASE EVENT DATE: 20240607
